FAERS Safety Report 8986275 (Version 1)
Quarter: 2012Q4

REPORT INFORMATION
  Report Type: Spontaneous
  Country: FR (occurrence: None)
  Receive Date: 20121217
  Receipt Date: 20121217
  Transmission Date: 20130627
  Serious: Yes (Death, Hospitalization)
  Sender: FDA-Public Use
  Company Number: 2012VX005439

PATIENT
  Age: 81 Year
  Sex: Female

DRUGS (2)
  1. VISUDYNE [Suspect]
     Indication: AGE-RELATED MACULAR DEGENERATION
     Dosage: ; U ; UNK
     Dates: start: 200808
  2. LUCENTIS [Suspect]
     Indication: AGE-RELATED MACULAR DEGENERATION

REACTIONS (1)
  - Death [None]
